FAERS Safety Report 6081438-6 (Version None)
Quarter: 2009Q1

REPORT INFORMATION
  Report Type: 
  Country: None (occurrence: None)
  Receive Date: 20090213
  Receipt Date: 20090129
  Transmission Date: 20090719
  Serious: Yes (Death, Hospitalization)
  Sender: FDA-Public Use
  Company Number: 2008003182

PATIENT
  Age: 81 Year
  Sex: Male

DRUGS (1)
  1. ERLOTINIB / PLACEBO (ERLOTINIB HCL) (TABLET) (ERLOTINIB HCL) [Suspect]
     Indication: NON-SMALL CELL LUNG CANCER
     Dosage: 150 MG, QD), ORAL
     Route: 048
     Dates: start: 20080806, end: 20081127

REACTIONS (4)
  - DEEP VEIN THROMBOSIS [None]
  - MYOCARDIAL ISCHAEMIA [None]
  - PLEURAL EFFUSION [None]
  - TACHYCARDIA [None]
